FAERS Safety Report 23643312 (Version 1)
Quarter: 2024Q1

REPORT INFORMATION
  Report Type: Spontaneous
  Country: DE (occurrence: DE)
  Receive Date: 20240318
  Receipt Date: 20240318
  Transmission Date: 20240409
  Serious: Yes (Hospitalization, Other)
  Sender: FDA-Public Use
  Company Number: DE-ABBVIE-5664574

PATIENT
  Age: 42 Year
  Sex: Female
  Weight: 97 kg

DRUGS (7)
  1. ENTYVIO [Suspect]
     Active Substance: VEDOLIZUMAB
     Indication: Product used for unknown indication
     Dosage: UNK
     Route: 065
     Dates: start: 2019, end: 2021
  2. RINVOQ [Suspect]
     Active Substance: UPADACITINIB
     Indication: Crohn^s disease
     Dosage: 45 MILLIGRAM
     Route: 048
     Dates: start: 20230516
  3. RINVOQ [Suspect]
     Active Substance: UPADACITINIB
     Dosage: 30 MILLIGRAM
     Route: 048
  4. ADALIMUMAB [Suspect]
     Active Substance: ADALIMUMAB\ISOPROPYL ALCOHOL
     Indication: Crohn^s disease
     Dosage: UNK
     Route: 058
     Dates: start: 2012, end: 2015
  5. INFLIXIMAB [Suspect]
     Active Substance: INFLIXIMAB
     Indication: Product used for unknown indication
     Dosage: UNK
     Route: 065
     Dates: start: 2016, end: 2017
  6. USTEKINUMAB [Suspect]
     Active Substance: USTEKINUMAB
     Indication: Product used for unknown indication
     Dosage: UNK
     Route: 065
     Dates: start: 2021, end: 2022
  7. PANTOPRAZOLE SODIUM [Concomitant]
     Active Substance: PANTOPRAZOLE SODIUM
     Dosage: 40 MILLIGRAM

REACTIONS (15)
  - Hospitalisation [Unknown]
  - Lupus-like syndrome [Unknown]
  - General physical health deterioration [Unknown]
  - Asthenia [Unknown]
  - Gait disturbance [Unknown]
  - Fatigue [Unknown]
  - Drug specific antibody absent [Unknown]
  - Therapeutic product effect decreased [Unknown]
  - Diarrhoea [Unknown]
  - Arthralgia [Unknown]
  - Abdominal pain lower [Unknown]
  - Abdominal pain [Unknown]
  - Therapeutic product effect incomplete [Unknown]
  - Therapeutic product effect decreased [Unknown]
  - Faeces hard [Unknown]

NARRATIVE: CASE EVENT DATE: 20230101
